FAERS Safety Report 25183591 (Version 1)
Quarter: 2025Q2

REPORT INFORMATION
  Report Type: Report from Study
  Country: KR (occurrence: KR)
  Receive Date: 20250410
  Receipt Date: 20250410
  Transmission Date: 20250716
  Serious: Yes (Hospitalization)
  Sender: TAKEDA
  Company Number: KR-TAKEDA-2025TUS035087

PATIENT
  Age: 28 Year
  Sex: Female

DRUGS (3)
  1. VEDOLIZUMAB [Suspect]
     Active Substance: VEDOLIZUMAB
     Indication: Colitis ulcerative
  2. METOCLOPRAMIDE HYDROCHLORIDE [Concomitant]
     Active Substance: METOCLOPRAMIDE HYDROCHLORIDE
     Indication: Abdominal pain
     Dosage: 10 MILLILITER, QD
     Dates: start: 20230328
  3. RIFAXIMIN [Concomitant]
     Active Substance: RIFAXIMIN
     Indication: Abdominal pain
     Dosage: UNK UNK, QD
     Dates: start: 20230402

REACTIONS (1)
  - Abdominal pain [Recovered/Resolved]

NARRATIVE: CASE EVENT DATE: 20230402
